FAERS Safety Report 17074331 (Version 1)
Quarter: 2019Q4

REPORT INFORMATION
  Report Type: Spontaneous
  Country: US (occurrence: US)
  Receive Date: 20191026
  Receipt Date: 20191026
  Transmission Date: 20200122
  Serious: Yes (Hospitalization)
  Sender: FDA-Public Use
  Company Number: None

PATIENT
  Age: 66 Year
  Sex: Male
  Weight: 112.1 kg

DRUGS (2)
  1. TAXOL [Suspect]
     Active Substance: PACLITAXEL
     Dates: end: 20190624
  2. CARBOPLATIN. [Suspect]
     Active Substance: CARBOPLATIN
     Dates: end: 20190624

REACTIONS (15)
  - Odynophagia [None]
  - Asthenia [None]
  - Oesophagitis [None]
  - Pneumonitis [None]
  - Organising pneumonia [None]
  - Dysphagia [None]
  - Decreased appetite [None]
  - Weight decreased [None]
  - Acute respiratory failure [None]
  - Pneumomediastinum [None]
  - Bronchial fistula [None]
  - Pneumonia [None]
  - Mental status changes [None]
  - Encephalitis [None]
  - Respiratory failure [None]

NARRATIVE: CASE EVENT DATE: 20190805
